FAERS Safety Report 7623381-4 (Version None)
Quarter: 2011Q3

REPORT INFORMATION
  Report Type: 
  Country: None (occurrence: None)
  Receive Date: 20110720
  Receipt Date: 20110711
  Transmission Date: 20111222
  Serious: Yes (Other)
  Sender: FDA-Public Use
  Company Number: US-JNJFOC-20110705852

PATIENT
  Age: 53 Year
  Sex: Female
  Weight: 64.86 kg

DRUGS (1)
  1. NEOSPORIN [Suspect]
     Indication: ANTIBIOTIC PROPHYLAXIS
     Dosage: 'HALF AN INCH DAILY^
     Route: 065
     Dates: end: 20110710

REACTIONS (7)
  - APPLICATION SITE PAIN [None]
  - OFF LABEL USE [None]
  - GAIT DISTURBANCE [None]
  - APPLICATION SITE SWELLING [None]
  - PARAESTHESIA [None]
  - EXPIRED DRUG ADMINISTERED [None]
  - PAIN [None]
